FAERS Safety Report 5236991-9 (Version None)
Quarter: 2007Q1

REPORT INFORMATION
  Report Type: 
  Country: None (occurrence: None)
  Receive Date: 20070213
  Receipt Date: 20070129
  Transmission Date: 20070707
  Serious: Yes (Death)
  Sender: FDA-Public Use
  Company Number: PT-ROCHE-476635

PATIENT
  Age: 75 Year
  Sex: Female

DRUGS (2)
  1. BONVIVA [Suspect]
     Indication: OSTEOPOROSIS
     Route: 048
     Dates: start: 20061115, end: 20061215
  2. ACETAMINOPHEN AND TRAMADOL HCL [Concomitant]

REACTIONS (1)
  - SEPTIC SHOCK [None]
